FAERS Safety Report 13990798 (Version 1)
Quarter: 2017Q3

REPORT INFORMATION
  Report Type: Spontaneous
  Country: GB (occurrence: GB)
  Receive Date: 20170920
  Receipt Date: 20170920
  Transmission Date: 20171128
  Serious: Yes (Other)
  Sender: FDA-Public Use
  Company Number: GB-MYLANLABS-2017M1056984

PATIENT
  Age: 64 Year
  Sex: Female
  Weight: 69 kg

DRUGS (1)
  1. TOPIRAMATE. [Suspect]
     Active Substance: TOPIRAMATE
     Indication: HEADACHE
     Route: 048
     Dates: start: 20130925, end: 20140527

REACTIONS (1)
  - Alopecia scarring [Recovered/Resolved with Sequelae]

NARRATIVE: CASE EVENT DATE: 20140527
